FAERS Safety Report 11990868 (Version 1)
Quarter: 2016Q1

REPORT INFORMATION
  Report Type: Report from Study
  Country: BR (occurrence: BR)
  Receive Date: 20160202
  Receipt Date: 20160202
  Transmission Date: 20160526
  Serious: Yes (Other)
  Sender: FDA-Public Use
  Company Number: BR-ABBVIE-15K-020-1331185-00

PATIENT
  Sex: Male

DRUGS (4)
  1. HUMIRA [Suspect]
     Active Substance: ADALIMUMAB
     Route: 058
  2. HUMIRA [Suspect]
     Active Substance: ADALIMUMAB
     Indication: CROHN^S DISEASE
     Dosage: INDUCTION DOSE
     Route: 058
  3. HUMIRA [Suspect]
     Active Substance: ADALIMUMAB
     Route: 058
  4. HUMIRA [Suspect]
     Active Substance: ADALIMUMAB
     Route: 058

REACTIONS (9)
  - Infection [Unknown]
  - Small intestinal obstruction [Unknown]
  - Anaemia [Unknown]
  - Large intestine perforation [Unknown]
  - Drug ineffective [Unknown]
  - Abdominal abscess [Unknown]
  - Spinal cord abscess [Unknown]
  - Intestinal perforation [Unknown]
  - Crohn^s disease [Unknown]
